FAERS Safety Report 14556607 (Version 1)
Quarter: 2018Q1

REPORT INFORMATION
  Report Type: Spontaneous
  Country: US (occurrence: US)
  Receive Date: 20180221
  Receipt Date: 20180221
  Transmission Date: 20180509
  Serious: Yes (Other)
  Sender: FDA-Public Use
  Company Number: US-PFIZER INC-2018068059

PATIENT
  Age: 54 Year
  Sex: Male
  Weight: 81.65 kg

DRUGS (1)
  1. CHANTIX [Suspect]
     Active Substance: VARENICLINE TARTRATE
     Indication: EX-TOBACCO USER
     Dosage: UNK
     Dates: start: 2014, end: 201710

REACTIONS (9)
  - Abnormal dreams [Unknown]
  - Intentional product misuse [Unknown]
  - Confusional state [Unknown]
  - Aggression [Unknown]
  - Loss of consciousness [Unknown]
  - Somnambulism [Unknown]
  - Feeling abnormal [Unknown]
  - Cognitive disorder [Unknown]
  - Amnesia [Unknown]

NARRATIVE: CASE EVENT DATE: 201710
